FAERS Safety Report 17129253 (Version 1)
Quarter: 2019Q4

REPORT INFORMATION
  Report Type: Spontaneous
  Country: US (occurrence: US)
  Receive Date: 20191207
  Receipt Date: 20191207
  Transmission Date: 20200122
  Serious: Yes (Hospitalization, Disabling)
  Sender: FDA-Public Use
  Company Number: None

PATIENT
  Age: 21 Year
  Sex: Male

DRUGS (1)
  1. VENLAFAXINE XR [Suspect]
     Active Substance: VENLAFAXINE HYDROCHLORIDE
     Dates: start: 20190426, end: 20190507

REACTIONS (6)
  - Intrusive thoughts [None]
  - Dependence [None]
  - Panic attack [None]
  - Amnesia [None]
  - Hyperacusis [None]
  - Disability [None]

NARRATIVE: CASE EVENT DATE: 20190426
